FAERS Safety Report 8329302-3 (Version None)
Quarter: 2012Q2

REPORT INFORMATION
  Report Type: 
  Country: None (occurrence: None)
  Receive Date: 20120502
  Receipt Date: 20120329
  Transmission Date: 20120825
  Serious: No
  Sender: FDA-Public Use
  Company Number: US-ASTRAZENECA-2012SE21260

PATIENT
  Sex: Female

DRUGS (1)
  1. FASLODEX [Suspect]
     Dosage: 500 MG DOS EIN 4 SMALLER SHOTS
     Route: 030

REACTIONS (1)
  - OFF LABEL USE [None]
